FAERS Safety Report 5269316-3 (Version None)
Quarter: 2007Q1

REPORT INFORMATION
  Report Type: 
  Country: None (occurrence: None)
  Receive Date: 20070319
  Receipt Date: 20070307
  Transmission Date: 20070707
  Serious: Yes (Other)
  Sender: FDA-Public Use
  Company Number: NL-PFIZER INC-2007011645

PATIENT
  Sex: Female
  Weight: 60 kg

DRUGS (4)
  1. LYRICA [Suspect]
     Indication: NEURALGIA
     Route: 048
     Dates: start: 20060911, end: 20060927
  2. ACENOCOUMAROL [Concomitant]
     Route: 048
  3. ZOLPIDEM [Concomitant]
     Indication: INSOMNIA
     Dosage: DAILY DOSE:10MG
     Dates: start: 20050517
  4. PARNATE [Concomitant]
     Indication: DEPRESSION

REACTIONS (3)
  - FALL [None]
  - INCONTINENCE [None]
  - MUSCULAR WEAKNESS [None]
